FAERS Safety Report 8188540-3 (Version None)
Quarter: 2012Q1

REPORT INFORMATION
  Report Type: 
  Country: None (occurrence: None)
  Receive Date: 20120306
  Receipt Date: 20120302
  Transmission Date: 20120608
  Serious: Yes (Other)
  Sender: FDA-Public Use
  Company Number: PHEH2011US011888

PATIENT
  Sex: Male

DRUGS (9)
  1. LOSARTAN POTASSIUM [Concomitant]
  2. MULTI-VITAMINS [Concomitant]
  3. CALCIUM [Concomitant]
  4. ACETYLSALICYLIC ACID SRT [Concomitant]
     Dosage: 81 MG, UNK
  5. CYMBALTA [Concomitant]
  6. MULTI-VITAMIN [Concomitant]
  7. HYDROCORTISONE [Concomitant]
  8. AFINITOR [Suspect]
     Indication: RENAL CELL CARCINOMA
     Dosage: 10 MG, DAILY
  9. PROSCAR [Concomitant]

REACTIONS (4)
  - DIZZINESS [None]
  - NAUSEA [None]
  - RASH PRURITIC [None]
  - HYPOTENSION [None]
